FAERS Safety Report 8290806-3 (Version None)
Quarter: 2012Q2

REPORT INFORMATION
  Report Type: 
  Country: None (occurrence: None)
  Receive Date: 20120417
  Receipt Date: 20120416
  Transmission Date: 20120825
  Serious: Yes (Other)
  Sender: FDA-Public Use
  Company Number: US-GLAXOSMITHKLINE-A0973825A

PATIENT
  Sex: Female

DRUGS (1)
  1. ALLI [Suspect]
     Indication: WEIGHT LOSS DIET
     Route: 065

REACTIONS (3)
  - HEPATIC ENZYME INCREASED [None]
  - DRUG ADMINISTRATION ERROR [None]
  - TREATMENT NONCOMPLIANCE [None]
